FAERS Safety Report 9384801 (Version 3)
Quarter: 2013Q4

REPORT INFORMATION
  Report Type: Spontaneous
  Country: GB (occurrence: GB)
  Receive Date: 20130705
  Receipt Date: 20131023
  Transmission Date: 20140711
  Serious: Yes (Life-Threatening)
  Sender: FDA-Public Use
  Company Number: GB-PFIZER INC-2013197692

PATIENT
  Age: 76 Year
  Sex: Male

DRUGS (6)
  1. TRANEXAMIC ACID [Suspect]
     Dosage: 1 G, 1X/DAY
     Route: 042
     Dates: start: 20130613, end: 20130613
  2. VALSARTAN [Concomitant]
     Indication: HYPERTENSION
  3. ETODOLAC [Concomitant]
     Indication: PAIN
  4. SIMVASTATIN [Concomitant]
     Route: 048
  5. ASPIRIN [Concomitant]
  6. LANSOPRAZOLE [Concomitant]

REACTIONS (1)
  - Bronchospasm [Recovering/Resolving]
